FAERS Safety Report 19820202 (Version 1)
Quarter: 2021Q3

REPORT INFORMATION
  Report Type: Spontaneous
  Country: US (occurrence: US)
  Receive Date: 20210909
  Receipt Date: 20210909
  Transmission Date: 20211014
  Serious: Yes (Hospitalization)
  Sender: FDA-Public Use
  Company Number: None

PATIENT
  Sex: Male

DRUGS (1)
  1. GLATIRAMER ACETATE (12X1ML) 40MG/ML MYLAN [Suspect]
     Active Substance: GLATIRAMER ACETATE
     Indication: MULTIPLE SCLEROSIS
     Dosage: INJECT ONE SYRINGE SUBCUTANEOUSLY 3 TIMES A WEEK AT LEAST 48 HOURS APART
     Route: 058
     Dates: start: 20160301

REACTIONS (5)
  - Fall [None]
  - Condition aggravated [None]
  - Movement disorder [None]
  - Multiple sclerosis [None]
  - Disease recurrence [None]
